FAERS Safety Report 9089835 (Version 1)
Quarter: 2013Q1

REPORT INFORMATION
  Report Type: Spontaneous
  Country: US (occurrence: US)
  Receive Date: 20130131
  Receipt Date: 20130131
  Transmission Date: 20140127
  Serious: No
  Sender: FDA-Public Use
  Company Number: US-ASTRAZENECA-2013SE02364

PATIENT
  Age: 63 Year
  Sex: Female
  Weight: 70.3 kg

DRUGS (2)
  1. CRESTOR [Suspect]
     Indication: BLOOD CHOLESTEROL INCREASED
     Route: 048
  2. CRESTOR [Suspect]
     Indication: HYPERTENSION
     Route: 048

REACTIONS (1)
  - Gastrooesophageal reflux disease [Unknown]
